FAERS Safety Report 9137717 (Version 1)
Quarter: 2013Q1

REPORT INFORMATION
  Report Type: Spontaneous
  Country: US (occurrence: US)
  Receive Date: 20130304
  Receipt Date: 20130304
  Transmission Date: 20140127
  Serious: No
  Sender: FDA-Public Use
  Company Number: US-ENDO PHARMACEUTICALS INC.-PERC20120148

PATIENT
  Sex: Male
  Weight: 85.35 kg

DRUGS (1)
  1. PERCOCET-5 [Suspect]
     Indication: SPINAL FRACTURE
     Dosage: 5/325 MG
     Route: 048
     Dates: start: 201207, end: 201209

REACTIONS (3)
  - Weight decreased [Not Recovered/Not Resolved]
  - Decreased appetite [Not Recovered/Not Resolved]
  - Insomnia [Not Recovered/Not Resolved]
